FAERS Safety Report 9124827 (Version 1)
Quarter: 2013Q1

REPORT INFORMATION
  Report Type: Spontaneous
  Country: US (occurrence: US)
  Receive Date: 20130227
  Receipt Date: 20130227
  Transmission Date: 20140127
  Serious: Yes (Hospitalization)
  Sender: FDA-Public Use
  Company Number: US-B.I. PHARMACEUTICALS,INC./RIDGEFIELD-2012-BI-00098BP

PATIENT
  Age: 76 Year
  Sex: Female
  Weight: 52.16 kg

DRUGS (11)
  1. PRADAXA [Suspect]
     Indication: ATRIAL FIBRILLATION
     Dosage: 300 MG
     Route: 048
     Dates: start: 20120113
  2. OXYCODONE [Concomitant]
     Indication: PAIN
  3. ASPIRIN [Concomitant]
     Dosage: 81 MG
  4. CALCIUM WITH VITAMIN D [Concomitant]
  5. COREG [Concomitant]
     Dosage: 50 MG
  6. DIGOXIN [Concomitant]
     Dosage: 0.125 MG
  7. LASIX [Concomitant]
     Dosage: 20 MG
  8. ACTOS [Concomitant]
     Dosage: 15 MG
  9. POTASSIUM [Concomitant]
     Dosage: 8 MEQ
  10. PTU [Concomitant]
     Dosage: 100 MG
  11. SIMVASTATIN [Concomitant]
     Dosage: 80 MG

REACTIONS (1)
  - Gastrointestinal haemorrhage [Unknown]
